FAERS Safety Report 14194040 (Version 2)
Quarter: 2018Q1

REPORT INFORMATION
  Report Type: Spontaneous
  Country: DE (occurrence: DE)
  Receive Date: 20171116
  Receipt Date: 20180308
  Transmission Date: 20180508
  Serious: Yes (Death, Hospitalization)
  Sender: FDA-Public Use
  Company Number: DE-AMGEN-DEUSP2017171410

PATIENT
  Age: 76 Year
  Sex: Female

DRUGS (5)
  1. RANTUDIL [Concomitant]
     Active Substance: ACEMETACIN
     Dosage: UNK
  2. GOLD [Concomitant]
     Active Substance: GOLD
     Dosage: UNK
  3. ENBREL [Suspect]
     Active Substance: ETANERCEPT
     Indication: RHEUMATOID ARTHRITIS
     Dosage: 50 MG, QWK
     Route: 065
     Dates: start: 20140304
  4. FOLIC ACID. [Concomitant]
     Active Substance: FOLIC ACID
     Dosage: UNK
  5. MTX [Concomitant]
     Active Substance: METHOTREXATE SODIUM
     Dosage: 10 MG, QWK

REACTIONS (2)
  - Procedural complication [Fatal]
  - Aneurysm [Fatal]
